FAERS Safety Report 6481389-9 (Version None)
Quarter: 2009Q4

REPORT INFORMATION
  Report Type: 
  Country: None (occurrence: None)
  Receive Date: 20091203
  Receipt Date: 20091021
  Transmission Date: 20100525
  Serious: Yes (Hospitalization)
  Sender: FDA-Public Use
  Company Number: 1000010427

PATIENT
  Sex: Female

DRUGS (4)
  1. LEXAPRO [Suspect]
     Dosage: ORAL
     Route: 048
  2. ATACAND [Concomitant]
  3. ELEVIT VITAMINS [Concomitant]
  4. INSULIN [Concomitant]

REACTIONS (6)
  - AMNIOTIC FLUID VOLUME DECREASED [None]
  - CAESAREAN SECTION [None]
  - DRUG EXPOSURE DURING PREGNANCY [None]
  - GESTATIONAL DIABETES [None]
  - PREGNANCY [None]
  - PREMATURE RUPTURE OF MEMBRANES [None]
